FAERS Safety Report 20590899 (Version 1)
Quarter: 2022Q1

REPORT INFORMATION
  Report Type: Spontaneous
  Country: US (occurrence: US)
  Receive Date: 20220314
  Receipt Date: 20220314
  Transmission Date: 20220423
  Serious: No
  Sender: FDA-Public Use
  Company Number: US-SA-SAC20220308000878

PATIENT
  Age: 2 Year
  Sex: Male
  Weight: 10.3 kg

DRUGS (1)
  1. DUPIXENT [Suspect]
     Active Substance: DUPILUMAB
     Dosage: 200 MG, QM
     Route: 058

REACTIONS (2)
  - Product use issue [Unknown]
  - Product prescribing issue [Unknown]
